FAERS Safety Report 11823068 (Version 1)
Quarter: 2015Q4

REPORT INFORMATION
  Report Type: Spontaneous
  Country: JP (occurrence: JP)
  Receive Date: 20151210
  Receipt Date: 20151210
  Transmission Date: 20160305
  Serious: Yes (Other)
  Sender: FDA-Public Use
  Company Number: JP-PFIZER INC-2015434212

PATIENT
  Age: 90 Year
  Sex: Female

DRUGS (2)
  1. JZOLOFT [Suspect]
     Active Substance: SERTRALINE HYDROCHLORIDE
     Dosage: 50 MG, DAILY
     Route: 048
     Dates: end: 2015
  2. RISPERIDONE. [Suspect]
     Active Substance: RISPERIDONE
     Dosage: UNK

REACTIONS (2)
  - Ileus [Not Recovered/Not Resolved]
  - Erysipelas [Unknown]

NARRATIVE: CASE EVENT DATE: 20151130
